APPROVED DRUG PRODUCT: CLINDAMYCIN PHOSPHATE
Active Ingredient: CLINDAMYCIN PHOSPHATE
Strength: EQ 1% BASE
Dosage Form/Route: LOTION;TOPICAL
Application: A215607 | Product #001 | TE Code: AB
Applicant: ENCUBE ETHICALS PRIVATE LTD
Approved: Jan 18, 2022 | RLD: No | RS: No | Type: RX